FAERS Safety Report 21984543 (Version 1)
Quarter: 2023Q1

REPORT INFORMATION
  Report Type: Spontaneous
  Country: US (occurrence: US)
  Receive Date: 20230213
  Receipt Date: 20230213
  Transmission Date: 20230417
  Serious: Yes (Hospitalization)
  Sender: FDA-Public Use
  Company Number: US-MYLANLABS-2023M1014486

PATIENT
  Age: 37 Year
  Sex: Male

DRUGS (4)
  1. MAGNESIUM [Suspect]
     Active Substance: MAGNESIUM
     Indication: Hypomagnesaemia
     Dosage: 1064 MILLIGRAM ( INITIALLY, DRUG WITHDRAWN)
     Route: 065
  2. MAGNESIUM [Suspect]
     Active Substance: MAGNESIUM
     Dosage: UNK, RESTARTED WITH A HIGH DOSE
     Route: 065
  3. K PHOS NEUTRAL [Suspect]
     Active Substance: POTASSIUM PHOSPHATE, MONOBASIC\SODIUM PHOSPHATE, DIBASIC, ANHYDROUS\SODIUM PHOSPHATE, MONOBASIC, MON
     Indication: Hypomagnesaemia
     Dosage: UNK, BID, PACKETS; HAVING PHOSPHORUS 8MMOL/ PACKET
     Route: 065
  4. AMILORIDE [Suspect]
     Active Substance: AMILORIDE
     Indication: Hypomagnesaemia
     Dosage: 20 MILLIGRAM, QD
     Route: 065

REACTIONS (1)
  - Drug ineffective [Unknown]
